FAERS Safety Report 14555433 (Version 1)
Quarter: 2018Q1

REPORT INFORMATION
  Report Type: Spontaneous
  Country: GB (occurrence: GB)
  Receive Date: 20180220
  Receipt Date: 20180220
  Transmission Date: 20180509
  Serious: Yes (Hospitalization)
  Sender: FDA-Public Use
  Company Number: GB-ASTRAZENECA-2018SE19372

PATIENT
  Age: 84 Year
  Sex: Female

DRUGS (7)
  1. GLYCERYL TRINITRATE [Concomitant]
     Active Substance: NITROGLYCERIN
  2. LORAZEPAM. [Suspect]
     Active Substance: LORAZEPAM
     Dosage: 1 MG, THREE TIMES DAILY AS NEEDED
     Route: 048
     Dates: end: 20180108
  3. PARACETAMOL [Concomitant]
     Active Substance: ACETAMINOPHEN
  4. QUETIAPINE. [Suspect]
     Active Substance: QUETIAPINE
     Route: 048
     Dates: start: 20180103
  5. TRAJENTA [Concomitant]
     Active Substance: LINAGLIPTIN
  6. SALBUTAMOL [Concomitant]
     Active Substance: ALBUTEROL
  7. LANTUS [Concomitant]
     Active Substance: INSULIN GLARGINE

REACTIONS (4)
  - Abnormal behaviour [Unknown]
  - Confusional state [Unknown]
  - Fall [Unknown]
  - Gait disturbance [Unknown]
